FAERS Safety Report 10464275 (Version 1)
Quarter: 2014Q3

REPORT INFORMATION
  Report Type: Spontaneous
  Country: BE (occurrence: BE)
  Receive Date: 20140919
  Receipt Date: 20140919
  Transmission Date: 20150326
  Serious: Yes (Death, Hospitalization)
  Sender: FDA-Public Use
  Company Number: BE-MYLANLABS-2014M1004685

PATIENT

DRUGS (8)
  1. METHYLPREDNISOLONE [Suspect]
     Active Substance: METHYLPREDNISOLONE
     Indication: IMMUNE RECONSTITUTION INFLAMMATORY SYNDROME
     Dosage: 48 MG/DAY
     Route: 065
  2. EMTRICITABINE [Suspect]
     Active Substance: EMTRICITABINE
     Indication: HIV INFECTION
     Route: 065
  3. ETHAMBUTOL [Concomitant]
     Active Substance: ETHAMBUTOL HYDROCHLORIDE
     Indication: MYCOBACTERIUM AVIUM COMPLEX INFECTION
     Route: 065
  4. ABACAVIR [Suspect]
     Active Substance: ABACAVIR
     Route: 065
  5. LOPINAVIR W/RITONAVIR [Suspect]
     Active Substance: LOPINAVIR\RITONAVIR
     Indication: HIV INFECTION
     Route: 065
  6. LAMIVUDINE. [Suspect]
     Active Substance: LAMIVUDINE
     Indication: HIV INFECTION
     Route: 065
  7. TENOFOVIR [Suspect]
     Active Substance: TENOFOVIR
     Indication: HIV INFECTION
     Route: 065
  8. CLARITHROMYCIN. [Concomitant]
     Active Substance: CLARITHROMYCIN
     Indication: MYCOBACTERIUM AVIUM COMPLEX INFECTION
     Route: 065

REACTIONS (18)
  - Cytomegalovirus colitis [Unknown]
  - Inappropriate antidiuretic hormone secretion [None]
  - Mycobacterium avium complex infection [None]
  - Renal failure [None]
  - Pericardial effusion [Unknown]
  - Nephropathy [None]
  - Aspergillus infection [Fatal]
  - Immune reconstitution inflammatory syndrome [Unknown]
  - Oesophageal candidiasis [None]
  - Multi-organ failure [Fatal]
  - Weight decreased [None]
  - Renal failure acute [Recovered/Resolved]
  - Lung infection [Unknown]
  - Pneumocystis jirovecii pneumonia [None]
  - Encephalitis [None]
  - Enterococcal infection [Unknown]
  - Oral herpes [None]
  - Progressive multifocal leukoencephalopathy [None]
